FAERS Safety Report 8139199-2 (Version None)
Quarter: 2012Q1

REPORT INFORMATION
  Report Type: 
  Country: None (occurrence: None)
  Receive Date: 20120215
  Receipt Date: 20120206
  Transmission Date: 20120608
  Serious: Yes (Hospitalization)
  Sender: FDA-Public Use
  Company Number: US-ABBOTT-12P-163-0901713-00

PATIENT
  Sex: Female
  Weight: 99.88 kg

DRUGS (6)
  1. TOPAMAX [Concomitant]
     Indication: MIGRAINE
  2. PROTOTRYPTALLINE [Concomitant]
     Indication: MIGRAINE
  3. LUPRON DEPOT [Suspect]
     Dates: start: 20111101
  4. SYNTHROID [Concomitant]
     Indication: HYPOTHYROIDISM
  5. BYSTOLIC [Concomitant]
     Indication: MIGRAINE
  6. LUPRON DEPOT [Suspect]
     Indication: MIGRAINE
     Dates: start: 20101001

REACTIONS (8)
  - LOSS OF CONSCIOUSNESS [None]
  - BLOOD OESTROGEN INCREASED [None]
  - DRUG INEFFECTIVE FOR UNAPPROVED INDICATION [None]
  - HYPERTENSION [None]
  - MIGRAINE [None]
  - HYPOTENSION [None]
  - OFF LABEL USE [None]
  - CARDIAC HYPERTROPHY [None]
